FAERS Safety Report 4716726-6 (Version None)
Quarter: 2005Q3

REPORT INFORMATION
  Report Type: 
  Country: None (occurrence: None)
  Receive Date: 20050714
  Receipt Date: 20050707
  Transmission Date: 20060218
  Serious: Yes (Other)
  Sender: FDA-Public Use
  Company Number: GBWYE680319MAY05

PATIENT
  Age: 54 Year
  Sex: Male

DRUGS (5)
  1. RAPAMUNE [Suspect]
     Dosage: 2 MG 1X PER 1 DAY ORAL
     Route: 048
     Dates: start: 20050206
  2. ALFACALCIDOL (ALFACALCIDOL) [Concomitant]
  3. CANDESARTAN (CANDESARTAN) [Concomitant]
  4. ASPIRIN [Concomitant]
  5. CELLCEPT [Concomitant]

REACTIONS (1)
  - RENAL FAILURE ACUTE [None]
